FAERS Safety Report 18667345 (Version 1)
Quarter: 2020Q4

REPORT INFORMATION
  Report Type: Report from Study
  Country: HU (occurrence: HU)
  Receive Date: 20201228
  Receipt Date: 20201228
  Transmission Date: 20210114
  Serious: Yes (Hospitalization, Other)
  Sender: FDA-Public Use
  Company Number: HU-JNJFOC-20191038396

PATIENT
  Age: 49 Year
  Sex: Female
  Weight: 54.5 kg

DRUGS (18)
  1. USTEKINUMAB [Suspect]
     Active Substance: USTEKINUMAB
     Dosage: WEEK 56
     Route: 058
     Dates: start: 20200525
  2. METHYLPREDNISOLONE. [Concomitant]
     Active Substance: METHYLPREDNISOLONE
     Dosage: DAILY
     Route: 048
     Dates: start: 20191112
  3. ACENOCOUMAROL [Concomitant]
     Active Substance: ACENOCOUMAROL
     Indication: PULMONARY EMBOLISM
     Dosage: DAILY
     Route: 048
     Dates: start: 20190725
  4. ACENOCOUMAROL [Concomitant]
     Active Substance: ACENOCOUMAROL
     Dosage: EVERY OTHER DAY
     Route: 048
     Dates: start: 20190328, end: 20190520
  5. USTEKINUMAB [Suspect]
     Active Substance: USTEKINUMAB
     Dosage: AT WEEK 32
     Route: 058
     Dates: start: 20191209
  6. USTEKINUMAB [Suspect]
     Active Substance: USTEKINUMAB
     Dosage: AT WEEK 24
     Route: 058
     Dates: start: 20191014
  7. USTEKINUMAB [Suspect]
     Active Substance: USTEKINUMAB
     Dosage: AT WEEK 8
     Route: 058
     Dates: start: 20190627
  8. USTEKINUMAB [Suspect]
     Active Substance: USTEKINUMAB
     Dosage: AT WEEK 16
     Route: 058
     Dates: start: 20190822
  9. NADROPARIN [Concomitant]
     Active Substance: NADROPARIN
     Indication: PULMONARY EMBOLISM
     Dosage: DAILY
     Route: 058
     Dates: start: 20190222, end: 20190330
  10. ACENOCOUMAROL [Concomitant]
     Active Substance: ACENOCOUMAROL
     Dosage: EVERY OTHER DAY
     Route: 048
     Dates: start: 20190329, end: 20190724
  11. USTEKINUMAB [Suspect]
     Active Substance: USTEKINUMAB
     Dosage: WEEK 56
     Route: 058
     Dates: start: 20200525
  12. METHYLPREDNISOLONE. [Concomitant]
     Active Substance: METHYLPREDNISOLONE
     Dosage: DAILY
     Route: 048
     Dates: start: 20190528, end: 20191111
  13. VITAMIN D                          /00107901/ [Concomitant]
     Active Substance: ERGOCALCIFEROL
     Indication: OSTEOPOROSIS PROPHYLAXIS
     Dosage: 1000 UNIT DAILY
     Route: 048
     Dates: start: 20190328
  14. ACENOCOUMAROL [Concomitant]
     Active Substance: ACENOCOUMAROL
     Dosage: EVERY OTHER DAY
     Route: 048
     Dates: start: 20190521, end: 20190724
  15. USTEKINUMAB [Suspect]
     Active Substance: USTEKINUMAB
     Indication: SYSTEMIC LUPUS ERYTHEMATOSUS
     Dosage: AT WEEK 0
     Route: 058
     Dates: start: 20190429
  16. USTEKINUMAB [Suspect]
     Active Substance: USTEKINUMAB
     Dosage: WEEK 40
     Route: 058
     Dates: start: 20200203
  17. METHYLPREDNISOLONE. [Concomitant]
     Active Substance: METHYLPREDNISOLONE
     Indication: SYSTEMIC LUPUS ERYTHEMATOSUS
     Dosage: DAILY
     Route: 048
     Dates: start: 20190108, end: 20190527
  18. USTEKINUMAB [Suspect]
     Active Substance: USTEKINUMAB
     Dosage: WEEK 48
     Route: 058
     Dates: start: 20200331

REACTIONS (1)
  - Gastroenteritis [Recovered/Resolved]

NARRATIVE: CASE EVENT DATE: 20191021
